FAERS Safety Report 7255211-7 (Version None)
Quarter: 2011Q1

REPORT INFORMATION
  Report Type: 
  Country: None (occurrence: None)
  Receive Date: 20110129
  Receipt Date: 20100218
  Transmission Date: 20110831
  Serious: No
  Sender: FDA-Public Use
  Company Number: US-ABBOTT-10P-163-0628309-00

PATIENT
  Sex: Male
  Weight: 108.96 kg

DRUGS (11)
  1. ENALAPRIL MALEATE [Concomitant]
     Indication: PRODUCT USED FOR UNKNOWN INDICATION
  2. METOPROLOL [Concomitant]
     Indication: PRODUCT USED FOR UNKNOWN INDICATION
  3. METHOTREXATE [Concomitant]
     Indication: PRODUCT USED FOR UNKNOWN INDICATION
     Dosage: FORM STRENGTH: 2.5MG
     Dates: start: 20100217
  4. FLOMAX [Concomitant]
     Indication: URINE FLOW DECREASED
  5. SINGULAIR [Concomitant]
     Indication: HYPERSENSITIVITY
  6. LOVASTATIN [Concomitant]
     Indication: PRODUCT USED FOR UNKNOWN INDICATION
  7. CYMBALTA [Concomitant]
     Indication: IRRITABLE BOWEL SYNDROME
  8. HUMIRA [Suspect]
     Indication: PSORIASIS
     Dates: start: 20090701, end: 20100210
  9. ALLOPURINOL [Concomitant]
     Indication: GOUT
  10. TRIAM [Concomitant]
     Indication: HEART RATE INCREASED
  11. OMEPRAZOLE [Concomitant]
     Indication: GASTROOESOPHAGEAL REFLUX DISEASE

REACTIONS (2)
  - PSORIASIS [None]
  - GENERALISED ERYTHEMA [None]
